FAERS Safety Report 20876241 (Version 4)
Quarter: 2022Q4

REPORT INFORMATION
  Report Type: Report from Study
  Country: US (occurrence: US)
  Receive Date: 20220526
  Receipt Date: 20221028
  Transmission Date: 20230112
  Serious: Yes (Life-Threatening, Hospitalization, Other)
  Sender: FDA-Public Use
  Company Number: US-ABBVIE-22K-163-4219646-00

PATIENT
  Sex: Male

DRUGS (3)
  1. IMBRUVICA [Suspect]
     Active Substance: IBRUTINIB
     Indication: Chronic lymphocytic leukaemia
     Route: 048
     Dates: start: 201905
  2. IMBRUVICA [Suspect]
     Active Substance: IBRUTINIB
     Indication: Chronic lymphocytic leukaemia
     Route: 048
     Dates: start: 20190514
  3. LUPRON [Concomitant]
     Active Substance: LEUPROLIDE ACETATE
     Indication: Product used for unknown indication
     Dosage: SHOTS
     Route: 065
     Dates: start: 2020

REACTIONS (22)
  - Bladder neoplasm [Unknown]
  - Prostate cancer [Unknown]
  - Neoplasm malignant [Unknown]
  - Skin cancer [Unknown]
  - Leukaemia [Unknown]
  - Bladder cancer [Unknown]
  - Somnolence [Not Recovered/Not Resolved]
  - Blood blister [Unknown]
  - Hot flush [Unknown]
  - Fatigue [Recovered/Resolved]
  - Prostatic specific antigen increased [Unknown]
  - Blood sodium decreased [Unknown]
  - Feeling abnormal [Unknown]
  - Laboratory test abnormal [Unknown]
  - Off label use [Unknown]
  - Pain [Unknown]
  - Contusion [Unknown]
  - Erythema [Unknown]
  - Petechiae [Unknown]
  - Bone cancer [Unknown]
  - Dehydration [Unknown]
  - Adverse drug reaction [Unknown]

NARRATIVE: CASE EVENT DATE: 20150101
